FAERS Safety Report 14656546 (Version 1)
Quarter: 2018Q1

REPORT INFORMATION
  Report Type: Report from Study
  Country: CA (occurrence: CA)
  Receive Date: 20180319
  Receipt Date: 20180319
  Transmission Date: 20180509
  Serious: Yes (Disabling)
  Sender: FDA-Public Use
  Company Number: CA-HLSUS-2018-CA-000455

PATIENT
  Age: 68 Year
  Sex: Male

DRUGS (1)
  1. CLOZAPINE. [Suspect]
     Active Substance: CLOZAPINE
     Indication: TREMOR
     Route: 048

REACTIONS (3)
  - Hydronephrosis [Recovered/Resolved with Sequelae]
  - Product use in unapproved indication [Not Recovered/Not Resolved]
  - Kidney infection [Recovered/Resolved with Sequelae]
